FAERS Safety Report 4295630-4 (Version None)
Quarter: 2004Q1

REPORT INFORMATION
  Report Type: 
  Country: None (occurrence: None)
  Receive Date: 20040216
  Receipt Date: 20030804
  Transmission Date: 20041129
  Serious: No
  Sender: FDA-Public Use
  Company Number: US-GLAXOSMITHKLINE-A0419362A

PATIENT
  Age: 68 Year
  Sex: Female
  Weight: 68.2 kg

DRUGS (1)
  1. PAXIL [Suspect]
     Indication: DEPRESSION
     Route: 048
     Dates: start: 19990101, end: 20030728

REACTIONS (1)
  - PARAESTHESIA [None]
